FAERS Safety Report 4407830-0 (Version None)
Quarter: 2004Q3

REPORT INFORMATION
  Report Type: 
  Country: None (occurrence: None)
  Receive Date: 20040726
  Receipt Date: 20040617
  Transmission Date: 20050211
  Serious: Yes (Life-Threatening, Hospitalization, Other)
  Sender: FDA-Public Use
  Company Number: AU-GLAXOSMITHKLINE-B0336877A

PATIENT
  Age: 45 Year
  Sex: Female

DRUGS (2)
  1. PAROXETINE HCL [Suspect]
     Dosage: 20MG PER DAY
     Route: 048
     Dates: start: 20000701, end: 20021224
  2. VALPROIC ACID [Concomitant]
     Route: 048
     Dates: start: 20030201, end: 20040310

REACTIONS (12)
  - CONVULSION [None]
  - DIZZINESS [None]
  - DRUG WITHDRAWAL SYNDROME [None]
  - LOSS OF CONSCIOUSNESS [None]
  - POSTICTAL STATE [None]
  - ROAD TRAFFIC ACCIDENT [None]
  - SENSATION OF PRESSURE IN EAR [None]
  - SEROTONIN SYNDROME [None]
  - SOMNOLENCE [None]
  - TEMPORAL LOBE EPILEPSY [None]
  - TREMOR [None]
  - VERTIGO [None]
